FAERS Safety Report 15117426 (Version 2)
Quarter: 2018Q3

REPORT INFORMATION
  Report Type: Spontaneous
  Country: BE (occurrence: BE)
  Receive Date: 20180706
  Receipt Date: 20180712
  Transmission Date: 20181010
  Serious: Yes (Hospitalization, Other)
  Sender: FDA-Public Use
  Company Number: PHHY2018BE014190

PATIENT
  Sex: Male

DRUGS (2)
  1. ENTRESTO [Suspect]
     Active Substance: SACUBITRIL\VALSARTAN
     Indication: PRODUCT USED FOR UNKNOWN INDICATION
     Dosage: 100 MG, BID (49/51 MG)
     Route: 048
     Dates: start: 20160418, end: 20180108
  2. ENTRESTO [Suspect]
     Active Substance: SACUBITRIL\VALSARTAN
     Dosage: 50 MG, BID (24/26 MG)
     Route: 048
     Dates: start: 20180108

REACTIONS (9)
  - Pneumonia [Unknown]
  - Upper limb fracture [Recovered/Resolved]
  - Spinal fracture [Recovered/Resolved]
  - Orthostatic hypotension [Unknown]
  - Pelvic fracture [Recovered/Resolved]
  - Gait disturbance [Unknown]
  - Fall [Recovered/Resolved]
  - Chronic obstructive pulmonary disease [Unknown]
  - Dizziness [Unknown]

NARRATIVE: CASE EVENT DATE: 20171214
